FAERS Safety Report 9325439 (Version 1)
Quarter: 2013Q2

REPORT INFORMATION
  Report Type: Spontaneous
  Country: US (occurrence: None)
  Receive Date: 20130528
  Receipt Date: 20130528
  Transmission Date: 20140414
  Serious: Yes (Hospitalization)
  Sender: FDA-Public Use
  Company Number: 0513047

PATIENT
  Sex: Female

DRUGS (1)
  1. COLD + ALLERGY LIP SOOTHER [Suspect]
     Indication: NASOPHARYNGITIS
     Dosage: APPLIED TO LIPS 9/6/12
     Dates: start: 20120906, end: 20120906

REACTIONS (11)
  - Multiple injuries [None]
  - Lip swelling [None]
  - Cheilitis [None]
  - Swelling face [None]
  - Erythema [None]
  - Pain [None]
  - Inflammation [None]
  - Dermatitis contact [None]
  - Infection [None]
  - Skin discolouration [None]
  - Dry skin [None]
